FAERS Safety Report 15331641 (Version 2)
Quarter: 2018Q4

REPORT INFORMATION
  Report Type: Spontaneous
  Country: CO (occurrence: CO)
  Receive Date: 20180829
  Receipt Date: 20181008
  Transmission Date: 20190204
  Serious: Yes (Hospitalization)
  Sender: FDA-Public Use
  Company Number: CO-PFIZER INC-2017070319

PATIENT
  Age: 87 Year
  Sex: Female

DRUGS (3)
  1. XELJANZ [Suspect]
     Active Substance: TOFACITINIB CITRATE
     Indication: RHEUMATOID ARTHRITIS
     Dosage: 5 MG
     Route: 048
     Dates: start: 2015
  2. XELJANZ [Suspect]
     Active Substance: TOFACITINIB CITRATE
     Dosage: 0.5 DF, TWICE DAILY (1/2 TABLET AT MORNING AND AT NIGHT)
     Route: 048
     Dates: start: 201701, end: 20170210
  3. XELJANZ [Suspect]
     Active Substance: TOFACITINIB CITRATE
     Dosage: 5 MG
     Route: 048
     Dates: start: 201703

REACTIONS (6)
  - Pubis fracture [Not Recovered/Not Resolved]
  - Pelvic fracture [Recovering/Resolving]
  - Fractured coccyx [Recovering/Resolving]
  - Fall [Not Recovered/Not Resolved]
  - Drug ineffective [Recovering/Resolving]
  - Underdose [Unknown]

NARRATIVE: CASE EVENT DATE: 2017
